FAERS Safety Report 23655335 (Version 1)
Quarter: 2024Q1

REPORT INFORMATION
  Report Type: Spontaneous
  Country: GB (occurrence: GB)
  Receive Date: 20240320
  Receipt Date: 20240320
  Transmission Date: 20240410
  Serious: Yes (Other)
  Sender: FDA-Public Use
  Company Number: GB-SUN PHARMACEUTICAL INDUSTRIES LTD-2024R1-437094

PATIENT
  Weight: 3.43 kg

DRUGS (9)
  1. INSULIN NOS [Suspect]
     Active Substance: INSULIN NOS
     Indication: Blood glucose increased
     Dosage: UNK
     Route: 064
  2. GLYBURIDE [Suspect]
     Active Substance: GLYBURIDE
     Indication: Blood glucose increased
     Dosage: 7.5 MILLIGRAM, DAILY
     Route: 064
  3. GLYBURIDE [Suspect]
     Active Substance: GLYBURIDE
     Dosage: UNK (2.5-5 MG IN THE MORNING AND 5 MG BEFORE THE EVENING MEAL)
     Route: 064
  4. GLYBURIDE [Suspect]
     Active Substance: GLYBURIDE
     Dosage: UNK (5 MG IN THE MORNING AND 5 MG BEFORE DINNER)
     Route: 064
  5. GLYBURIDE [Suspect]
     Active Substance: GLYBURIDE
     Dosage: 5 MILLIGRAM, BID
     Route: 064
  6. METFORMIN [Suspect]
     Active Substance: METFORMIN HYDROCHLORIDE
     Indication: Blood glucose increased
     Dosage: 1000 MILLIGRAM, BID
     Route: 064
  7. METFORMIN [Suspect]
     Active Substance: METFORMIN HYDROCHLORIDE
     Dosage: UNK (1000 MG AT NIGHT)
     Route: 064
  8. RYBELSUS [Suspect]
     Active Substance: SEMAGLUTIDE
     Indication: Blood glucose increased
     Dosage: 3 MILLIGRAM, DAILY
     Route: 064
  9. RYBELSUS [Suspect]
     Active Substance: SEMAGLUTIDE
     Dosage: 7 MILLIGRAM, DAILY
     Route: 064

REACTIONS (2)
  - Foetal exposure during pregnancy [Unknown]
  - Premature baby [Unknown]
